FAERS Safety Report 18943292 (Version 1)
Quarter: 2021Q1

REPORT INFORMATION
  Report Type: Spontaneous
  Country: US (occurrence: US)
  Receive Date: 20210226
  Receipt Date: 20210226
  Transmission Date: 20210420
  Serious: No
  Sender: FDA-Public Use
  Company Number: US-ACCORD-210112

PATIENT
  Age: 69 Year
  Sex: Female
  Weight: 49.9 kg

DRUGS (2)
  1. BETAMETHASONE. [Concomitant]
     Active Substance: BETAMETHASONE
     Dosage: AS NEEDED AS NEEDED ON CHEEK BONES
  2. TACROLIMUS. [Suspect]
     Active Substance: TACROLIMUS
     Indication: FEELING ABNORMAL
     Dosage: TWICE A DAY AD NEEDED
     Route: 061
     Dates: start: 202008

REACTIONS (4)
  - Off label use [Unknown]
  - Drug ineffective [Unknown]
  - Pruritus [Not Recovered/Not Resolved]
  - Swelling of eyelid [Not Recovered/Not Resolved]

NARRATIVE: CASE EVENT DATE: 20201129
